FAERS Safety Report 4859685-8 (Version None)
Quarter: 2005Q4

REPORT INFORMATION
  Report Type: 
  Country: None (occurrence: None)
  Receive Date: 20051219
  Receipt Date: 20051208
  Transmission Date: 20060501
  Serious: Yes (Hospitalization)
  Sender: FDA-Public Use
  Company Number: US-AVENTIS-200514921EU

PATIENT
  Age: 53 Year
  Sex: Male
  Weight: 93.4 kg

DRUGS (6)
  1. FUROSEMIDE [Suspect]
     Indication: VENTRICULAR DYSFUNCTION
     Route: 048
  2. ANGIOMAX [Suspect]
     Route: 040
     Dates: start: 20050811, end: 20050811
  3. ANGIOMAX [Suspect]
     Route: 042
     Dates: start: 20050811, end: 20050811
  4. ANGIOMAX [Suspect]
     Route: 040
     Dates: start: 20050811, end: 20050811
  5. ANGIOMAX [Suspect]
     Route: 042
     Dates: start: 20050811, end: 20050811
  6. AMLODIPINE [Suspect]
     Indication: HYPERTENSION
     Route: 048

REACTIONS (6)
  - BRONCHITIS [None]
  - CHEST PAIN [None]
  - CONDITION AGGRAVATED [None]
  - DYSPNOEA [None]
  - HYPOTENSION [None]
  - PAIN IN EXTREMITY [None]
